FAERS Safety Report 13554871 (Version 8)
Quarter: 2018Q3

REPORT INFORMATION
  Report Type: Spontaneous
  Country: US (occurrence: US)
  Receive Date: 20170517
  Receipt Date: 20180830
  Transmission Date: 20181010
  Serious: No
  Sender: FDA-Public Use
  Company Number: US-ACTELION-A-US2017-153904

PATIENT
  Age: 52 Year
  Sex: Male
  Weight: 86.17 kg

DRUGS (5)
  1. REVATIO [Concomitant]
     Active Substance: SILDENAFIL CITRATE
  2. TRACLEER [Suspect]
     Active Substance: BOSENTAN
     Dosage: UNK
     Route: 048
  3. TRACLEER [Suspect]
     Active Substance: BOSENTAN
     Indication: PULMONARY ARTERIAL HYPERTENSION
     Dosage: 125 MG, BID
     Route: 048
  4. ORENITRAM [Suspect]
     Active Substance: TREPROSTINIL
     Indication: PRODUCT USED FOR UNKNOWN INDICATION
     Dosage: UNK
     Route: 065
  5. ORENITRAM [Suspect]
     Active Substance: TREPROSTINIL
     Dosage: 5 MG, TID
     Route: 065

REACTIONS (8)
  - Flushing [Unknown]
  - Abdominal discomfort [Unknown]
  - Diarrhoea [Recovering/Resolving]
  - Dyspepsia [Recovering/Resolving]
  - Myalgia [Unknown]
  - Dizziness [Recovering/Resolving]
  - Catheterisation cardiac [Unknown]
  - Drug intolerance [Unknown]

NARRATIVE: CASE EVENT DATE: 20180615
